FAERS Safety Report 9428552 (Version 1)
Quarter: 2013Q3

REPORT INFORMATION
  Report Type: Spontaneous
  Country: US (occurrence: US)
  Receive Date: 20130730
  Receipt Date: 20130730
  Transmission Date: 20140515
  Serious: No
  Sender: FDA-Public Use
  Company Number: US-ABBOTT-12P-163-1016907-00

PATIENT
  Age: 42 Year
  Sex: Male
  Weight: 113.5 kg

DRUGS (4)
  1. NIASPAN (COATED) [Suspect]
     Indication: BLOOD CHOLESTEROL INCREASED
     Dates: start: 20121118, end: 20121130
  2. VIIBRYD [Concomitant]
     Indication: ANXIETY
  3. ALLOPURINOL [Concomitant]
     Indication: GOUT
  4. XANAX [Concomitant]
     Indication: ANXIETY

REACTIONS (1)
  - Discomfort [Recovering/Resolving]
